FAERS Safety Report 12397882 (Version 1)
Quarter: 2016Q2

REPORT INFORMATION
  Report Type: Spontaneous
  Country: US (occurrence: US)
  Receive Date: 20160524
  Receipt Date: 20160524
  Transmission Date: 20160815
  Serious: No
  Sender: FDA-Public Use
  Company Number: US-MYLANLABS-2015M1018422

PATIENT
  Sex: Female

DRUGS (4)
  1. METHOTREXATE [Suspect]
     Active Substance: METHOTREXATE
     Indication: RHEUMATOID ARTHRITIS
     Dosage: UNK
  2. METHOTREXATE [Suspect]
     Active Substance: METHOTREXATE
     Indication: ANKYLOSING SPONDYLITIS
  3. NEURONTIN [Suspect]
     Active Substance: GABAPENTIN
     Dosage: 600 MG, 5XD
  4. FENTANYL. [Suspect]
     Active Substance: FENTANYL
     Dosage: UNK

REACTIONS (1)
  - Pain [Not Recovered/Not Resolved]
